FAERS Safety Report 9793289 (Version 2)
Quarter: 2014Q1

REPORT INFORMATION
  Report Type: Spontaneous
  Country: US (occurrence: US)
  Receive Date: 20140102
  Receipt Date: 20140123
  Transmission Date: 20141002
  Serious: No
  Sender: FDA-Public Use
  Company Number: US-PFIZER INC-2013370949

PATIENT
  Age: 51 Year
  Sex: Female

DRUGS (30)
  1. PREMARIN [Suspect]
     Dosage: 0.45 MG, QD
  2. LYRICA [Suspect]
     Dosage: 75 MG, 2X/DAY
  3. ZOLOFT [Suspect]
     Dosage: 200 MG, QD
  4. PROTONIX [Suspect]
     Dosage: 40 MG, BID
     Route: 048
  5. XANAX [Suspect]
     Dosage: 0.25 MG, PRN
  6. ZYRTEC [Suspect]
     Dosage: 10 MG, QD
  7. SYNTHROID [Concomitant]
     Dosage: 100 UG, QD
  8. PREDNISONE [Concomitant]
     Dosage: 5 MG, QD
  9. BUMEX [Concomitant]
     Dosage: 1 MG, QD
  10. TERBUTALINE [Concomitant]
     Dosage: 2.5 MG, TID
  11. COZAAR [Concomitant]
     Dosage: 150 MG, HS
  12. AMBIEN [Concomitant]
     Dosage: 10 MG, HS
  13. NORTRIPTYLINE [Concomitant]
     Dosage: 30 MG, HS
  14. ATROVENT [Concomitant]
     Dosage: 0.5 MG, NMT TID/PRN
  15. SUMATRIPTAN [Concomitant]
     Dosage: 6 MG, PRN
  16. MAXALT [Concomitant]
     Dosage: 10 MG, PRN
     Route: 048
  17. ZOFRAN [Concomitant]
     Dosage: 4 MG, PRN
  18. VICODIN [Concomitant]
     Dosage: 5/500 PRN
  19. TOPAMAX [Concomitant]
     Dosage: 20 MG, BID
  20. VITAMIN B COMPLEX [Concomitant]
     Dosage: UNK
  21. FISH OIL [Concomitant]
     Dosage: UNK
  22. OSTEO BI-FLEX [Concomitant]
  23. CALCIUM [Concomitant]
  24. CO Q10 [Concomitant]
  25. VITAMIN D3 [Concomitant]
     Dosage: 2000 IU, UNK
  26. MAGNESIUM [Concomitant]
     Dosage: UNK
  27. LYSINE [Concomitant]
  28. K-CLOR [Concomitant]
     Dosage: 40 MEQ, BID
  29. XOPENEX [Concomitant]
     Dosage: 1.25 MG, NMT TID/PRN
  30. RED RICE YEAST [Concomitant]
     Dosage: UNK

REACTIONS (2)
  - Migraine [Unknown]
  - Pain [Unknown]
